FAERS Safety Report 9274861 (Version 1)
Quarter: 2013Q2

REPORT INFORMATION
  Report Type: Spontaneous
  Country: US (occurrence: None)
  Receive Date: 20130501
  Receipt Date: 20130501
  Transmission Date: 20140414
  Serious: Yes (Hospitalization)
  Sender: FDA-Public Use
  Company Number: None

PATIENT
  Age: 9 Year
  Sex: Female
  Weight: 27 kg

DRUGS (4)
  1. CYCLOPHOSPHAMIDE [Suspect]
     Dates: end: 20130402
  2. DOXORUBICIN [Suspect]
     Dates: end: 20130330
  3. METHOTREXATE [Suspect]
     Dates: end: 20130329
  4. PREDNISONE [Suspect]

REACTIONS (4)
  - Febrile neutropenia [None]
  - White blood cell count decreased [None]
  - Haemoglobin decreased [None]
  - Caecitis [None]
